FAERS Safety Report 21976015 (Version 1)
Quarter: 2023Q1

REPORT INFORMATION
  Report Type: Spontaneous
  Country: US (occurrence: US)
  Receive Date: 20230210
  Receipt Date: 20230210
  Transmission Date: 20230418
  Serious: No
  Sender: FDA-Public Use
  Company Number: US-SA-SAC20230208001428

PATIENT
  Age: 58 Year
  Sex: Male

DRUGS (1)
  1. DUPIXENT [Suspect]
     Active Substance: DUPILUMAB
     Indication: Sinusitis
     Dosage: 300 MG QOW
     Route: 058
     Dates: start: 20220825

REACTIONS (3)
  - COVID-19 [Unknown]
  - Pulmonary mass [Unknown]
  - Product use in unapproved indication [Unknown]
